FAERS Safety Report 6127386-4 (Version None)
Quarter: 2009Q1

REPORT INFORMATION
  Report Type: 
  Country: None (occurrence: None)
  Receive Date: 20090323
  Receipt Date: 20090312
  Transmission Date: 20090719
  Serious: Yes (Hospitalization)
  Sender: FDA-Public Use
  Company Number: PHHY2009FR01769

PATIENT
  Sex: Female
  Weight: 58 kg

DRUGS (1)
  1. EXELON [Suspect]
     Indication: DEMENTIA
     Dosage: UNK
     Route: 062
     Dates: start: 20080922, end: 20081006

REACTIONS (1)
  - AGGRESSION [None]
